FAERS Safety Report 8979141 (Version 1)
Quarter: 2012Q4

REPORT INFORMATION
  Report Type: Report from Study
  Country: DE (occurrence: DE)
  Receive Date: 20121221
  Receipt Date: 20121221
  Transmission Date: 20130627
  Serious: Yes (Life-Threatening, Hospitalization, Other)
  Sender: FDA-Public Use
  Company Number: DE-ASTELLAS-2009EU002847

PATIENT
  Age: 67 Year
  Sex: Male

DRUGS (101)
  1. TACROLIMUS SYSTEMIC [Suspect]
     Indication: PROPHYLAXIS AGAINST TRANSPLANT REJECTION
     Dosage: 1.5 mg, bid
     Route: 048
     Dates: start: 20030430
  2. TACROLIMUS SYSTEMIC [Suspect]
     Dosage: 1.75 mg, bid
     Route: 048
     Dates: start: 20030516, end: 20030516
  3. TACROLIMUS SYSTEMIC [Suspect]
     Dosage: 1.5 mg, bid
     Route: 048
     Dates: start: 20030517, end: 20030517
  4. TACROLIMUS SYSTEMIC [Suspect]
     Dosage: 1.25 mg, bid
     Route: 048
     Dates: start: 20030529, end: 20030529
  5. TACROLIMUS SYSTEMIC [Suspect]
     Dosage: 1 mg, bid
     Route: 048
     Dates: start: 20030530
  6. TACROLIMUS SYSTEMIC [Suspect]
     Dosage: 2.5 mg, bid
     Route: 048
     Dates: start: 20031019, end: 20031019
  7. TACROLIMUS SYSTEMIC [Suspect]
     Dosage: 3 mg, bid
     Route: 048
     Dates: start: 20031020
  8. TACROLIMUS SYSTEMIC [Suspect]
     Dosage: 5.5 mg, bid
     Route: 048
     Dates: start: 20031026, end: 20031026
  9. TACROLIMUS SYSTEMIC [Suspect]
     Dosage: 5 mg, UID/QD
     Route: 048
     Dates: start: 20031027, end: 20031027
  10. TACROLIMUS SYSTEMIC [Suspect]
     Dosage: 3 mg, UID/QD
     Route: 048
     Dates: start: 20031028, end: 20031028
  11. TACROLIMUS SYSTEMIC [Suspect]
     Dosage: 3 mg, bid
     Route: 048
     Dates: start: 20031029
  12. TACROLIMUS SYSTEMIC [Suspect]
     Dosage: 2 mg, Other
     Route: 048
     Dates: start: 20031101, end: 20031101
  13. TACROLIMUS SYSTEMIC [Suspect]
     Dosage: 5 mg, bid
     Route: 048
     Dates: start: 20031102
  14. TACROLIMUS SYSTEMIC [Suspect]
     Dosage: 4 mg, bid
     Route: 048
     Dates: start: 20031106, end: 20031106
  15. TACROLIMUS SYSTEMIC [Suspect]
     Dosage: 3 mg, bid
     Route: 048
     Dates: start: 20031107
  16. TACROLIMUS SYSTEMIC [Suspect]
     Dosage: 2 mg, bid
     Route: 048
     Dates: start: 20031110, end: 20031110
  17. TACROLIMUS SYSTEMIC [Suspect]
     Dosage: 1.5 mg, bid
     Route: 048
     Dates: start: 20031111
  18. TACROLIMUS SYSTEMIC [Suspect]
     Dosage: 2 mg, bid
     Route: 048
     Dates: start: 20031114, end: 20031114
  19. TACROLIMUS SYSTEMIC [Suspect]
     Dosage: 0.75 mg, bid
     Route: 048
     Dates: start: 20031115
  20. DACLIZUMAB [Suspect]
     Indication: PROPHYLAXIS AGAINST TRANSPLANT REJECTION
     Dosage: 150 mg, Unknown/D
     Route: 042
     Dates: start: 20030430, end: 20030430
  21. DACLIZUMAB [Suspect]
     Dosage: 80 mg, Unknown/D
     Route: 042
     Dates: start: 20030513, end: 20030513
  22. DACLIZUMAB [Suspect]
     Dosage: 76 mg, Unknown/D
     Route: 042
     Dates: start: 20030527
  23. DACLIZUMAB [Suspect]
     Dosage: 75 mg, Other
     Route: 042
     Dates: start: 20030610, end: 20030625
  24. MYCOPHENOLATE MOFETIL [Suspect]
     Indication: PROPHYLAXIS AGAINST TRANSPLANT REJECTION
     Dosage: 1 g, UID/QD
     Route: 048
     Dates: start: 20030430, end: 20031011
  25. MYCOPHENOLATE MOFETIL [Suspect]
     Dosage: 250 mg, UID/QD
     Route: 048
     Dates: start: 20031105, end: 20031105
  26. MYCOPHENOLATE MOFETIL [Suspect]
     Dosage: 250 mg, bid
     Route: 048
     Dates: start: 20031106, end: 20031117
  27. MYCOPHENOLATE MOFETIL [Suspect]
     Dosage: 250 mg, bid
     Route: 048
     Dates: start: 20031125, end: 20031127
  28. MYCOPHENOLATE MOFETIL [Suspect]
     Indication: PROPHYLAXIS AGAINST TRANSPLANT REJECTION
     Dosage: 250 mg, Unknown/D
     Route: 048
     Dates: start: 20031118, end: 20031119
  29. MYCOPHENOLATE MOFETIL [Suspect]
     Dosage: 500 mg, bid
     Route: 048
     Dates: start: 20031128
  30. MYCOPHENOLATE MOFETIL [Suspect]
     Dosage: 1 g, bid
     Route: 048
     Dates: start: 20031205
  31. CICLOSPORIN [Suspect]
     Indication: PROPHYLAXIS AGAINST TRANSPLANT REJECTION
     Dosage: UNK, Unknown/D
     Route: 065
  32. SIROLIMUS [Suspect]
     Indication: PROPHYLAXIS AGAINST TRANSPLANT REJECTION
     Dosage: UNK, Unknown/D
     Route: 065
  33. DECORTIN H [Suspect]
     Indication: PROPHYLAXIS AGAINST TRANSPLANT REJECTION
     Dosage: 75 mg, Total Dose
     Route: 048
     Dates: start: 20030501, end: 20030501
  34. DECORTIN H [Suspect]
     Dosage: 50 mg, Total Dose
     Route: 048
     Dates: start: 20030502, end: 20030502
  35. DECORTIN H [Suspect]
     Dosage: 30 mg, UID/QD
     Route: 048
     Dates: start: 20030503, end: 20030515
  36. DECORTIN H [Suspect]
     Dosage: UNK
     Route: 048
     Dates: start: 20030317
  37. DECORTIN H [Suspect]
     Dosage: 75 mg, UID/QD
     Route: 048
     Dates: start: 20030519
  38. DECORTIN H [Suspect]
     Dosage: 50 mg, Total Dose
     Route: 048
     Dates: start: 20030527, end: 20030527
  39. DECORTIN H [Suspect]
     Dosage: 30 mg, Total Dose
     Route: 048
     Dates: start: 20030528, end: 20030528
  40. DECORTIN H [Suspect]
     Dosage: 7.5 mg, UID/QD
     Route: 048
     Dates: start: 20030529
  41. DECORTIN H [Suspect]
     Dosage: UNK
     Route: 048
     Dates: end: 20031030
  42. DECORTIN H [Suspect]
     Dosage: 75 mg, UID/QD
     Route: 048
     Dates: start: 20031101, end: 20031101
  43. DECORTIN H [Suspect]
     Dosage: 5 mg, UID/QD
     Route: 048
     Dates: start: 20031104
  44. PREDNISOLONE SODIUM SUCCINATE [Suspect]
     Indication: PROPHYLAXIS AGAINST TRANSPLANT REJECTION
     Dosage: 250 mg, Total Dose
     Route: 042
     Dates: start: 20030430, end: 20030430
  45. PREDNISOLONE SODIUM SUCCINATE [Suspect]
     Dosage: 250 mg, Total Dose
     Route: 042
     Dates: start: 20030501, end: 20030501
  46. PREDNISOLONE SODIUM SUCCINATE [Suspect]
     Dosage: 250 mg, UID/QD
     Route: 042
     Dates: start: 20030516, end: 20030516
  47. PREDNISOLONE SODIUM SUCCINATE [Suspect]
     Dosage: 100 mg, UID/QD
     Route: 042
     Dates: start: 20031029, end: 20031029
  48. PREDNISOLONE SODIUM SUCCINATE [Suspect]
     Dosage: 100 mg, UID/QD
     Route: 042
     Dates: end: 20031101
  49. PANTOZOL [Concomitant]
     Dosage: UNK, Unknown/D
     Route: 048
     Dates: start: 20030501
  50. ROCALTROL [Concomitant]
     Dosage: UNK, Unknown/D
     Route: 048
     Dates: start: 20030501
  51. SPASMEX [Concomitant]
     Dosage: UNK, Unknown/D
     Dates: start: 20030501, end: 20030503
  52. ACTRAPHANE [Concomitant]
     Dosage: UNK, Unknown/D
     Route: 058
     Dates: start: 20030502, end: 20030728
  53. CALCET [Concomitant]
     Dosage: 475 mg, Unknown/D
     Route: 065
     Dates: start: 20030515, end: 20030516
  54. AMPHO MORONAL [Concomitant]
     Dosage: 4 DF, UID/QD
     Route: 061
     Dates: start: 20030501, end: 20030916
  55. VIGANTOLETTEN [Concomitant]
     Dosage: 1000 mg/day, UID/QD
     Route: 048
     Dates: end: 20031024
  56. NYSTATIN [Concomitant]
     Dosage: UNK, Unknown/D
     Route: 065
  57. ASS [Concomitant]
     Dosage: 100 mg, UID/QD
     Route: 048
     Dates: end: 20031020
  58. CALCIUM [Concomitant]
     Dosage: 500 mg, UID/QD
     Route: 065
  59. CARBAMAZEPIN [Concomitant]
     Dosage: 300 mg, bid
     Route: 048
     Dates: start: 200310, end: 20031119
  60. ACICLOVIR [Concomitant]
     Dosage: 500 mg, tid
     Route: 042
     Dates: start: 20031024, end: 20031107
  61. DELIX [Concomitant]
     Dosage: UNK, Unknown/D
  62. CATAPRESSAN [Concomitant]
     Dosage: 150 mg, bid
     Route: 048
     Dates: start: 20030916, end: 20031118
  63. CATAPRESSAN [Concomitant]
     Dosage: 250 mg, bid
     Route: 048
     Dates: start: 20031030, end: 20031118
  64. CATAPRESSAN [Concomitant]
     Dosage: 150 UNK, Unknown/D
     Route: 065
  65. NEPRESOL [Concomitant]
     Dosage: 25 mg, bid
     Route: 065
  66. ISOKET RETARD [Concomitant]
     Dosage: 60 mg, bid
     Route: 065
  67. KALINOR-ACID [Concomitant]
     Dosage: UNK, Unknown/D
     Route: 065
  68. BERODUAL [Concomitant]
     Dosage: 2 DF, bid
     Route: 055
     Dates: start: 20031025, end: 20031110
  69. MOXONIDINE [Concomitant]
     Dosage: 0.4 mg, bid
     Route: 048
     Dates: start: 200310, end: 20031030
  70. MOXONIDINE [Concomitant]
     Dosage: UNK, Unknown/D
     Dates: start: 200310, end: 20031030
  71. ACTRAPID [Concomitant]
     Dosage: UNK, Unknown/D
     Route: 058
     Dates: start: 20030501
  72. AMLODIPIN [Concomitant]
     Dosage: 5 mg, bid
     Route: 048
     Dates: start: 20030512, end: 20031205
  73. ATROVENT [Concomitant]
     Dosage: 2 DF, UID/QD
     Route: 055
     Dates: start: 20030922, end: 20031001
  74. ATROVENT [Concomitant]
     Dosage: 1 DF, bid
     Route: 055
     Dates: start: 20031025, end: 20031118
  75. TROSPIUM CHLORIDE [Concomitant]
     Dosage: 1 DF, tid
     Route: 048
     Dates: start: 20030501, end: 20030503
  76. DILATREND [Concomitant]
     Dosage: 25 mg, bid
     Route: 048
     Dates: start: 20030430, end: 200402
  77. CEFOTIAM [Concomitant]
     Dosage: 250 mg, UID/QD
     Route: 042
     Dates: start: 20031118, end: 20031120
  78. CIPROBAY [Concomitant]
     Dosage: 250 mg, UID/QD
     Route: 042
     Dates: start: 20031127, end: 20031203
  79. CLOPIDOGREL BISULFATE [Concomitant]
     Dosage: 70 mg, UID/QD
     Route: 048
     Dates: start: 20031107, end: 20031112
  80. FLUVASTATIN [Concomitant]
     Dosage: 80 mg, UID/QD
     Route: 048
     Dates: start: 20031113
  81. LASIX [Concomitant]
     Dosage: 80 mg, bid
     Route: 048
     Dates: start: 20030513, end: 20030916
  82. LASIX [Concomitant]
     Dosage: 80 mg, bid
     Route: 048
     Dates: end: 20030918
  83. LASIX [Concomitant]
     Dosage: UNK
     Route: 048
     Dates: start: 20030922, end: 20030922
  84. LASIX [Concomitant]
     Dosage: UNK
     Route: 048
     Dates: end: 20030929
  85. LASIX [Concomitant]
     Dosage: 125 mg, bid
     Route: 048
     Dates: start: 20031001
  86. FUROSEMID [Concomitant]
     Dosage: 100 mg, bid
     Route: 042
     Dates: start: 20030917, end: 20030917
  87. FUROSEMID [Concomitant]
     Dosage: 125 mg, bid
     Route: 042
     Dates: start: 20030920, end: 20030921
  88. FUROSEMID [Concomitant]
     Dosage: UNK
     Route: 042
     Dates: end: 20031001
  89. CYMEVEN [Concomitant]
     Dosage: 1 g, tid
     Route: 013
     Dates: start: 20030501, end: 20030730
  90. LIQUEMIN [Concomitant]
     Dosage: UNK, Unknown/D
     Route: 042
     Dates: start: 20030503, end: 20030601
  91. HYDROCHLOROTHIAZID [Concomitant]
     Dosage: 25 mg, UID/QD
     Route: 048
     Dates: start: 200310, end: 20031110
  92. ISOSORBIDE [Concomitant]
     Dosage: 60 mg, bid
     Route: 048
     Dates: start: 20031104, end: 20031204
  93. CORVATON [Concomitant]
     Dosage: 8 mg, UID/QD
     Route: 048
     Dates: start: 20031107, end: 20031205
  94. NEORECORMON [Concomitant]
     Dosage: UNK, Unknown/D
     Route: 058
     Dates: start: 20030503, end: 20030604
  95. NEORECORMON [Concomitant]
     Dosage: 500 IU, Other
     Route: 058
     Dates: start: 20031121, end: 20031209
  96. BAYOTENSIN [Concomitant]
     Dosage: 1 DF, tid
     Route: 048
     Dates: start: 20030512, end: 20030518
  97. PRAVASIN [Concomitant]
     Dosage: 20 mg, UID/QD
     Route: 048
     Dates: start: 20030501, end: 20031107
  98. MINIPRESS [Concomitant]
     Dosage: 4 mg, bid
     Route: 048
     Dates: start: 20031030, end: 20031115
  99. PROTAPHANE [Concomitant]
     Dosage: UNK IU, prn
     Route: 058
     Dates: start: 20030620
  100. ACTONEL EINMAL WOECHENTLICH [Concomitant]
     Dosage: 5 mg, UID/QD
     Route: 048
     Dates: start: 20030501, end: 200310
  101. SULTANOL [Concomitant]
     Dosage: 1 DF, bid
     Route: 055
     Dates: start: 20031025, end: 20031118

REACTIONS (15)
  - Myocardial infarction [Recovered/Resolved]
  - Angina unstable [Recovered/Resolved]
  - Diabetes mellitus inadequate control [Recovered/Resolved]
  - Cardiac failure [Recovered/Resolved]
  - Urinary tract infection [Recovered/Resolved]
  - Renal failure [Recovered/Resolved]
  - Femoral neck fracture [Recovered/Resolved]
  - Cellulitis [Recovered/Resolved]
  - Herpes zoster [Recovered/Resolved]
  - Nephropathy [Not Recovered/Not Resolved]
  - Renal artery stenosis [Recovered/Resolved]
  - Angina pectoris [Recovered/Resolved]
  - Peritoneal hernia [Recovered/Resolved]
  - Fluid retention [Recovered/Resolved]
  - Hypertension [Recovered/Resolved]
